FAERS Safety Report 9109268 (Version 1)
Quarter: 2013Q1

REPORT INFORMATION
  Report Type: Spontaneous
  Country: US (occurrence: US)
  Receive Date: 20130222
  Receipt Date: 20130222
  Transmission Date: 20140127
  Serious: Yes (Other)
  Sender: FDA-Public Use
  Company Number: US-TEVA-387477USA

PATIENT
  Age: 15 Year
  Sex: Male

DRUGS (3)
  1. METHOTREXATE [Suspect]
     Indication: ADJUVANT THERAPY
     Dosage: HIGH DOSE; INFUSION; REDUCED DOSE (8 G/M2 INFUSED OVER 11H) USED DURING A DESENSITISATION PROTOCOL
     Route: 065
  2. DOXORUBICIN [Concomitant]
     Indication: ADJUVANT THERAPY
     Route: 065
  3. CISPLATIN [Concomitant]
     Indication: ADJUVANT THERAPY
     Route: 065

REACTIONS (1)
  - Anaphylactic reaction [Recovered/Resolved]
